FAERS Safety Report 13854248 (Version 3)
Quarter: 2017Q3

REPORT INFORMATION
  Report Type: Report from Study
  Country: HU (occurrence: HU)
  Receive Date: 20170809
  Receipt Date: 20170928
  Transmission Date: 20171127
  Serious: Yes (Hospitalization)
  Sender: FDA-Public Use
  Company Number: PHHY2017HU114803

PATIENT
  Age: 68 Year
  Sex: Female

DRUGS (3)
  1. AFINITOR [Suspect]
     Active Substance: EVEROLIMUS
     Indication: BREAST CANCER
     Dosage: 10 MG, QD
     Route: 065
     Dates: start: 20170524, end: 20170731
  2. ACUZIDE [Concomitant]
     Indication: PRODUCT USED FOR UNKNOWN INDICATION
     Dosage: UNK
     Route: 065
  3. METOPROLOL. [Concomitant]
     Active Substance: METOPROLOL
     Indication: PRODUCT USED FOR UNKNOWN INDICATION
     Dosage: UNK
     Route: 065

REACTIONS (21)
  - Mandibular mass [Recovered/Resolved]
  - Tongue blistering [Not Recovered/Not Resolved]
  - Haematocrit decreased [Unknown]
  - Tongue ulceration [Unknown]
  - Blood lactate dehydrogenase increased [Unknown]
  - Swollen tongue [Recovered/Resolved]
  - Swelling [Not Recovered/Not Resolved]
  - Glomerular filtration rate decreased [Unknown]
  - White blood cell count decreased [Unknown]
  - Dysphagia [Recovered/Resolved]
  - Blood creatinine increased [Unknown]
  - Alanine aminotransferase decreased [Unknown]
  - Eyelid oedema [Recovered/Resolved]
  - Neutrophil count decreased [Unknown]
  - Blister [Not Recovered/Not Resolved]
  - Blood calcium decreased [Unknown]
  - Gamma-glutamyltransferase decreased [Unknown]
  - Aspartate aminotransferase decreased [Unknown]
  - Platelet count decreased [Unknown]
  - Haemoglobin increased [Unknown]
  - Oedema [Unknown]
